FAERS Safety Report 14148614 (Version 1)
Quarter: 2017Q4

REPORT INFORMATION
  Report Type: Spontaneous
  Country: US (occurrence: US)
  Receive Date: 20171031
  Receipt Date: 20171031
  Transmission Date: 20180321
  Serious: Yes (Hospitalization, Other)
  Sender: FDA-Public Use
  Company Number: None

PATIENT
  Age: 73 Year
  Sex: Male
  Weight: 91.35 kg

DRUGS (2)
  1. TADALAFIL IND EXEMPT:  APPROVED PRODUCT [Suspect]
     Active Substance: TADALAFIL
     Indication: CHRONIC OBSTRUCTIVE PULMONARY DISEASE
     Route: 048
  2. TADALAFIL IND EXEMPT:  APPROVED PRODUCT [Suspect]
     Active Substance: TADALAFIL
     Indication: PULMONARY HYPERTENSION
     Route: 048

REACTIONS (2)
  - Visual impairment [None]
  - Blindness transient [None]

NARRATIVE: CASE EVENT DATE: 20170912
